FAERS Safety Report 22113920 (Version 1)
Quarter: 2023Q1

REPORT INFORMATION
  Report Type: Spontaneous
  Country: None (occurrence: US)
  Receive Date: 20230320
  Receipt Date: 20230320
  Transmission Date: 20230418
  Serious: No
  Sender: FDA-Public Use
  Company Number: US-ITALFARMACO SPA-2139255

PATIENT
  Age: 62 Year
  Sex: Female

DRUGS (8)
  1. TIGLUTIK [Suspect]
     Active Substance: RILUZOLE
     Indication: Amyotrophic lateral sclerosis
     Dates: start: 20220215
  2. ATROPINE [Concomitant]
     Active Substance: ATROPINE
  3. OXYMETAZOLINE HYDROCHLORIDE [Concomitant]
     Active Substance: OXYMETAZOLINE HYDROCHLORIDE
  4. IMIPRAMINE [Concomitant]
     Active Substance: IMIPRAMINE
  5. LISINOPRIL [Concomitant]
     Active Substance: LISINOPRIL
  6. TRAMADOL [Concomitant]
     Active Substance: TRAMADOL
  7. TYLENOL [Concomitant]
     Active Substance: ACETAMINOPHEN
  8. GLYCOPYRROLATE [Concomitant]
     Active Substance: GLYCOPYRROLATE

REACTIONS (2)
  - Insomnia [Not Recovered/Not Resolved]
  - Diarrhoea [Not Recovered/Not Resolved]

NARRATIVE: CASE EVENT DATE: 20221015
